FAERS Safety Report 6172875-X (Version None)
Quarter: 2009Q2

REPORT INFORMATION
  Report Type: 
  Country: None (occurrence: None)
  Receive Date: 20090430
  Receipt Date: 20090422
  Transmission Date: 20091009
  Serious: Yes (Other)
  Sender: FDA-Public Use
  Company Number: US-ROCHE-629535

PATIENT
  Sex: Female
  Weight: 74.8 kg

DRUGS (1)
  1. CAPECITABINE [Suspect]
     Dosage: DOSE: 1500 MG IN AM AND 1500 MG IN PM; TWO WEEKS ON AND ONE WEEK OFF
     Route: 048
     Dates: start: 20070503, end: 20090330

REACTIONS (1)
  - DISEASE PROGRESSION [None]
